FAERS Safety Report 7884342-3 (Version None)
Quarter: 2011Q4

REPORT INFORMATION
  Report Type: 
  Country: None (occurrence: None)
  Receive Date: 20111102
  Receipt Date: 20111031
  Transmission Date: 20120403
  Serious: Yes (Other)
  Sender: FDA-Public Use
  Company Number: US-ABBOTT-09P-163-0601763-00

PATIENT
  Sex: Male
  Weight: 73.548 kg

DRUGS (5)
  1. LIPITOR [Concomitant]
     Indication: HYPERLIPIDAEMIA
  2. HUMIRA [Suspect]
     Indication: ANKYLOSING SPONDYLITIS
     Route: 058
     Dates: end: 20101006
  3. HUMIRA [Suspect]
  4. TOPROL-XL [Concomitant]
     Indication: HYPERTENSION
  5. PEPCID [Concomitant]
     Indication: GASTROOESOPHAGEAL REFLUX DISEASE

REACTIONS (1)
  - RENAL CANCER [None]
